FAERS Safety Report 11437485 (Version 1)
Quarter: 2015Q3

REPORT INFORMATION
  Report Type: Spontaneous
  Country: US (occurrence: US)
  Receive Date: 20150821
  Receipt Date: 20150821
  Transmission Date: 20151125
  Serious: No
  Sender: FDA-Public Use
  Company Number: US-ELI_LILLY_AND_COMPANY-US200704005904

PATIENT
  Sex: Female

DRUGS (6)
  1. AMOXICILLIN. [Concomitant]
     Active Substance: AMOXICILLIN
  2. ALLERGY MEDICATION [Concomitant]
     Active Substance: DIPHENHYDRAMINE HYDROCHLORIDE
  3. IBUPROFEN. [Concomitant]
     Active Substance: IBUPROFEN
  4. KEFLEX [Concomitant]
     Active Substance: CEPHALEXIN
  5. ZOLOFT [Concomitant]
     Active Substance: SERTRALINE HYDROCHLORIDE
  6. CYMBALTA [Suspect]
     Active Substance: DULOXETINE HYDROCHLORIDE
     Indication: ABDOMINAL PAIN
     Dosage: 30 MG, EACH EVENING
     Dates: start: 20070315

REACTIONS (16)
  - Vision blurred [Unknown]
  - Sneezing [Unknown]
  - Temporomandibular joint syndrome [Unknown]
  - Somnolence [Unknown]
  - Pain in jaw [Unknown]
  - Ear pain [Not Recovered/Not Resolved]
  - Conjunctivitis [Unknown]
  - Musculoskeletal stiffness [Unknown]
  - Eye pruritus [Unknown]
  - Yawning [Unknown]
  - Dry eye [Unknown]
  - Toothache [Unknown]
  - Balance disorder [Unknown]
  - Tinnitus [Unknown]
  - Headache [Unknown]
  - Nasal congestion [Unknown]
